FAERS Safety Report 8390181 (Version 3)
Quarter: 2013Q1

REPORT INFORMATION
  Report Type: Report from Study
  Country: US (occurrence: US)
  Receive Date: 20120203
  Receipt Date: 20130315
  Transmission Date: 20140127
  Serious: Yes (Hospitalization)
  Sender: FDA-Public Use
  Company Number: US-UCBSA-050344

PATIENT
  Sex: Male

DRUGS (5)
  1. VIMPAT [Suspect]
     Indication: EPILEPSY
     Dosage: 300 MG/DAY
     Route: 048
     Dates: start: 20111025
  2. VIMPAT [Suspect]
     Indication: EPILEPSY
     Dosage: FOR ONE DAY
     Route: 048
  3. VIMPAT [Suspect]
     Indication: EPILEPSY
     Dosage: FOR 2 DAYS
     Route: 048
  4. SAVELLA [Concomitant]
     Indication: FIBROMYALGIA
     Dates: start: 2011
  5. DEPAKOTE [Concomitant]
     Dosage: 1500 MG DAILY

REACTIONS (1)
  - Psychogenic seizure [Unknown]
